FAERS Safety Report 6043018-8 (Version None)
Quarter: 2009Q1

REPORT INFORMATION
  Report Type: 
  Country: None (occurrence: None)
  Receive Date: 20090119
  Receipt Date: 20090113
  Transmission Date: 20090719
  Serious: Yes (Life-Threatening, Hospitalization, Other)
  Sender: FDA-Public Use
  Company Number: AU-JNJFOC-20081201162

PATIENT
  Sex: Male
  Weight: 15 kg

DRUGS (5)
  1. TOPAMAX [Suspect]
     Indication: EPILEPSY
     Dosage: 15 MG IN MORNING AND 30 MG IN EVENING
     Route: 048
  2. TOPAMAX [Suspect]
     Indication: CONVULSION
     Route: 048
  3. OMEPRAZOLE [Suspect]
     Indication: GASTROOESOPHAGEAL REFLUX DISEASE
     Route: 048
  4. ZANTAC [Suspect]
     Indication: GASTROOESOPHAGEAL REFLUX DISEASE
     Route: 048
  5. VIGABATRIN [Concomitant]
     Indication: CONVULSION
     Route: 048

REACTIONS (5)
  - ANOREXIA [None]
  - CHOLECYSTITIS [None]
  - NAUSEA [None]
  - PANCREATIC ENZYMES INCREASED [None]
  - VOMITING [None]
